FAERS Safety Report 20007802 (Version 3)
Quarter: 2021Q4

REPORT INFORMATION
  Report Type: Spontaneous
  Country: JP (occurrence: JP)
  Receive Date: 20211028
  Receipt Date: 20211215
  Transmission Date: 20220303
  Serious: Yes (Life-Threatening)
  Sender: FDA-Public Use
  Company Number: JP-SHIONOGI-202112930_SYP_P_1

PATIENT
  Age: 78 Year
  Sex: Male

DRUGS (114)
  1. NALDEMEDINE [Suspect]
     Active Substance: NALDEMEDINE
     Indication: Product used for unknown indication
     Dosage: 0.2 MG, QD
     Route: 065
     Dates: start: 20210512, end: 20210611
  2. SULFAMETHOXAZOLE\TRIMETHOPRIM [Suspect]
     Active Substance: SULFAMETHOXAZOLE\TRIMETHOPRIM
     Indication: Staphylococcal infection
     Dosage: 2 G, 1 PER 12 HOUR
     Route: 051
     Dates: start: 20210517, end: 20210604
  3. SULFAMETHOXAZOLE\TRIMETHOPRIM [Suspect]
     Active Substance: SULFAMETHOXAZOLE\TRIMETHOPRIM
  4. SODIUM GUALENATE [Concomitant]
     Active Substance: SODIUM GUALENATE
     Indication: Product used for unknown indication
     Dosage: UNKNOWN, UNKNOWN
     Route: 065
     Dates: start: 20210511, end: 20210511
  5. PARAFFIN [Concomitant]
     Active Substance: PARAFFIN
     Indication: Product used for unknown indication
     Dosage: A FEW TIMES/DAY
     Route: 065
     Dates: start: 20210511, end: 20210511
  6. RIFAMPIN [Concomitant]
     Active Substance: RIFAMPIN
     Indication: Staphylococcal infection
     Dosage: 450 MG, QD
     Route: 051
     Dates: start: 20210428
  7. RIFAMPIN [Concomitant]
     Active Substance: RIFAMPIN
  8. RIFAMPIN [Concomitant]
     Active Substance: RIFAMPIN
     Dosage: 450 MG, QD
     Route: 065
     Dates: start: 20210604
  9. SILVER SULFADIAZENE [Concomitant]
     Active Substance: SILVER SULFADIAZINE
     Indication: Product used for unknown indication
     Dosage: UNKNOWN, UNKNOWN
     Route: 065
     Dates: start: 20210514
  10. SILVER SULFADIAZENE [Concomitant]
     Active Substance: SILVER SULFADIAZINE
     Dosage: UNK
     Route: 065
  11. SILVER SULFADIAZENE [Concomitant]
     Active Substance: SILVER SULFADIAZINE
     Route: 065
  12. URSODIOL [Concomitant]
     Active Substance: URSODIOL
     Indication: Product used for unknown indication
     Dosage: 3 G, QD
     Route: 065
     Dates: start: 20210504
  13. GLUTAMINE\SODIUM GUALENATE [Concomitant]
     Active Substance: GLUTAMINE\SODIUM GUALENATE
     Indication: Product used for unknown indication
     Dosage: 1.5 G, QD
     Route: 065
     Dates: start: 20210514
  14. CLOSTRIDIUM BUTYRICUM SPORES STRAIN M-55 [Concomitant]
     Active Substance: CLOSTRIDIUM BUTYRICUM SPORES STRAIN M-55
     Indication: Product used for unknown indication
     Dosage: 3 G, QD
     Route: 065
     Dates: start: 20210504
  15. ZINGIBER OFFICINALE RHIZOME/CITRUS AURANTIUM PEEL/PANAX GINSENG ROOT/P [Concomitant]
     Indication: Product used for unknown indication
     Dosage: 7.5 G, QD
     Route: 065
     Dates: start: 20210504
  16. ZINGIBER OFFICINALE PROCESSED RHIZOME/PANAX GINSENG ROOT/ZANTHOXYLUM P [Concomitant]
     Indication: Product used for unknown indication
     Dosage: 7.5 G, QD
     Route: 065
     Dates: start: 20210504
  17. MOSAPRIDE CITRATE [Concomitant]
     Active Substance: MOSAPRIDE CITRATE
     Indication: Product used for unknown indication
     Dosage: 15 MG, QD
     Route: 065
     Dates: start: 20210504
  18. UNSPECIFIED INGREDIENT [Concomitant]
     Active Substance: UNSPECIFIED INGREDIENT
     Indication: Product used for unknown indication
     Dosage: 1 {DF}, TID
     Route: 065
     Dates: start: 20210525
  19. UNSPECIFIED INGREDIENT [Concomitant]
     Active Substance: UNSPECIFIED INGREDIENT
     Route: 065
     Dates: start: 20210525
  20. VONOPRAZAN FUMARATE [Concomitant]
     Active Substance: VONOPRAZAN FUMARATE
     Indication: Product used for unknown indication
     Dosage: 20 MG, QD
     Route: 065
     Dates: start: 20210522
  21. MEROPENEM [Concomitant]
     Active Substance: MEROPENEM
     Indication: Product used for unknown indication
     Dosage: 1 G, QD
     Route: 041
     Dates: start: 20210504
  22. SODIUM CHLORIDE [Concomitant]
     Active Substance: SODIUM CHLORIDE
     Indication: Product used for unknown indication
     Dosage: UNKNOWN, UNKNOWN
     Route: 041
     Dates: start: 20210504, end: 20210604
  23. SODIUM CHLORIDE [Concomitant]
     Active Substance: SODIUM CHLORIDE
     Dosage: 40 ML, QD
     Route: 041
     Dates: start: 20210504, end: 20210607
  24. SODIUM CHLORIDE [Concomitant]
     Active Substance: SODIUM CHLORIDE
     Dosage: 36 ML, QD
     Route: 041
     Dates: start: 20210504, end: 20210516
  25. SODIUM CHLORIDE [Concomitant]
     Active Substance: SODIUM CHLORIDE
     Dosage: 38 ML, QD
     Route: 041
     Dates: start: 20210512, end: 20210520
  26. SODIUM CHLORIDE [Concomitant]
     Active Substance: SODIUM CHLORIDE
     Dosage: 28 ML, TID
     Route: 041
     Dates: start: 20210517, end: 20210521
  27. SODIUM CHLORIDE [Concomitant]
     Active Substance: SODIUM CHLORIDE
     Dosage: 28 ML, QD
     Route: 041
     Dates: start: 20210520, end: 20210521
  28. SODIUM CHLORIDE [Concomitant]
     Active Substance: SODIUM CHLORIDE
     Dosage: 50 ML, QD
     Route: 042
     Dates: start: 20210512
  29. SODIUM CHLORIDE [Concomitant]
     Active Substance: SODIUM CHLORIDE
     Dosage: 45 ML, QD
     Route: 042
     Dates: start: 20210504, end: 20210607
  30. SODIUM CHLORIDE [Concomitant]
     Active Substance: SODIUM CHLORIDE
     Dosage: 46 ML, QD
     Route: 042
     Dates: start: 20210606, end: 20210608
  31. SODIUM CHLORIDE [Concomitant]
     Active Substance: SODIUM CHLORIDE
     Dosage: 30 ML, QD
     Route: 041
     Dates: start: 20210602, end: 20210610
  32. SODIUM CHLORIDE [Concomitant]
     Active Substance: SODIUM CHLORIDE
     Dosage: 45 ML, QD
     Route: 041
     Dates: start: 20210602, end: 20210611
  33. SODIUM CHLORIDE [Concomitant]
     Active Substance: SODIUM CHLORIDE
     Dosage: 40 ML, QD
     Route: 041
     Dates: start: 20210504, end: 20210516
  34. SODIUM CHLORIDE [Concomitant]
     Active Substance: SODIUM CHLORIDE
     Dosage: 40 ML, QD
     Route: 041
     Dates: start: 20210511, end: 20210517
  35. SODIUM CHLORIDE [Concomitant]
     Active Substance: SODIUM CHLORIDE
     Dosage: 20 ML, QD
     Route: 041
     Dates: start: 20210504, end: 20210521
  36. SODIUM CHLORIDE [Concomitant]
     Active Substance: SODIUM CHLORIDE
     Dosage: 100 ML, QD
     Route: 065
     Dates: start: 20210504, end: 20210604
  37. LIDOCAINE [Concomitant]
     Active Substance: LIDOCAINE
     Indication: Product used for unknown indication
     Dosage: 0.5 {DF}, PRN
     Route: 042
     Dates: start: 20210505
  38. ROCURONIUM BROMIDE [Concomitant]
     Active Substance: ROCURONIUM BROMIDE
     Indication: Product used for unknown indication
     Dosage: 100 MG, QD
     Route: 041
     Dates: start: 20210506, end: 20210506
  39. PANTETHINE [Concomitant]
     Active Substance: PANTETHINE
     Indication: Product used for unknown indication
     Dosage: 100 MG, QD
     Route: 041
     Dates: start: 20210504, end: 20210507
  40. PANTETHINE [Concomitant]
     Active Substance: PANTETHINE
     Dosage: 200 MG, QD
     Route: 065
     Dates: start: 20210508, end: 20210616
  41. MALTOSE/SODIUM LACTATE/POTASSIUM CHLORIDE/SODIUM CHLORIDE/CALCIUM CHLO [Concomitant]
     Indication: Product used for unknown indication
     Dosage: 250 ML, BID
     Route: 041
     Dates: start: 20210511, end: 20210511
  42. SODIUM LACTATE/POTASSIUM CHLORIDE/SODIUM CHLORIDE/CARBOHYDRATES NOS [Concomitant]
     Indication: Product used for unknown indication
     Dosage: 1 L, QD
     Route: 065
     Dates: start: 20210504, end: 20210512
  43. SODIUM LACTATE/POTASSIUM CHLORIDE/SODIUM CHLORIDE/CARBOHYDRATES NOS [Concomitant]
     Dosage: 200 ML, QD
     Route: 065
     Dates: start: 20210504, end: 20210514
  44. SODIUM LACTATE/POTASSIUM CHLORIDE/SODIUM CHLORIDE/CARBOHYDRATES NOS [Concomitant]
     Dosage: 500 ML, QD
     Route: 065
     Dates: start: 20210513, end: 20210514
  45. POTASSIUM CHLORIDE [Concomitant]
     Active Substance: POTASSIUM CHLORIDE
     Indication: Product used for unknown indication
     Dosage: 10 ML, QD
     Route: 041
     Dates: start: 20210512, end: 20210512
  46. POTASSIUM CHLORIDE [Concomitant]
     Active Substance: POTASSIUM CHLORIDE
     Dosage: 20 ML, QD
     Route: 041
     Dates: start: 20210513, end: 20210513
  47. POTASSIUM CHLORIDE [Concomitant]
     Active Substance: POTASSIUM CHLORIDE
     Dosage: 10 ML, QD
     Route: 041
     Dates: start: 20210507, end: 20210516
  48. POTASSIUM CHLORIDE [Concomitant]
     Active Substance: POTASSIUM CHLORIDE
     Dosage: 20 ML, TID
     Route: 041
     Dates: start: 20210513, end: 20210515
  49. PROPOFOL [Concomitant]
     Active Substance: PROPOFOL
     Indication: Product used for unknown indication
     Dosage: 50 ML, 8 TIMES/DAY
     Route: 041
     Dates: start: 20210504, end: 20210513
  50. PROPOFOL [Concomitant]
     Active Substance: PROPOFOL
     Dosage: 50 ML, QID
     Route: 041
     Dates: start: 20210514, end: 20210607
  51. LANDIOLOL HYDROCHLORIDE [Concomitant]
     Active Substance: LANDIOLOL HYDROCHLORIDE
     Indication: Product used for unknown indication
     Route: 041
     Dates: start: 20210516, end: 20210516
  52. LANDIOLOL HYDROCHLORIDE [Concomitant]
     Active Substance: LANDIOLOL HYDROCHLORIDE
     Dosage: 100 MG, QD
     Route: 041
     Dates: start: 20210511, end: 20210517
  53. TEDIZOLID PHOSPHATE [Concomitant]
     Active Substance: TEDIZOLID PHOSPHATE
     Dosage: 200 MG, QD
     Route: 041
     Dates: start: 20210428, end: 20210516
  54. TEDIZOLID PHOSPHATE [Concomitant]
     Active Substance: TEDIZOLID PHOSPHATE
  55. WATER FOR INJECTION [Concomitant]
     Active Substance: WATER
     Indication: Product used for unknown indication
     Dosage: 4 ML, QD
     Route: 065
     Dates: start: 20210504, end: 20210516
  56. WATER FOR INJECTION [Concomitant]
     Active Substance: WATER
     Dosage: 20 ML, QD
     Route: 065
     Dates: start: 20210504, end: 20210603
  57. SODIUM CHLORIDE [Concomitant]
     Active Substance: SODIUM CHLORIDE
     Indication: Product used for unknown indication
     Dosage: 250 ML, QD
     Route: 041
     Dates: start: 20210504, end: 20210516
  58. FENTANYL [Concomitant]
     Active Substance: FENTANYL
     Indication: Product used for unknown indication
     Dosage: 0.6 MG, QD
     Route: 065
     Dates: start: 20210504, end: 20210517
  59. FENTANYL [Concomitant]
     Active Substance: FENTANYL
     Dosage: 0.9 MG, QD
     Route: 065
     Dates: start: 20210602, end: 20210610
  60. FENTANYL [Concomitant]
     Active Substance: FENTANYL
     Dosage: 20 MG, QD
     Route: 042
     Dates: start: 20210526, end: 20210526
  61. SODIUM BICARBONATE [Concomitant]
     Active Substance: SODIUM BICARBONATE
     Indication: Product used for unknown indication
     Dosage: 250 ML, QD
     Route: 041
     Dates: start: 20210517, end: 20210517
  62. AMINO ACIDS, SOURCE UNSPECIFIED [Concomitant]
     Active Substance: AMINO ACIDS, SOURCE UNSPECIFIED
     Indication: Product used for unknown indication
     Dosage: 400 ML, QD
     Route: 041
     Dates: start: 20210515, end: 20210518
  63. AMINO ACIDS, SOURCE UNSPECIFIED [Concomitant]
     Active Substance: AMINO ACIDS, SOURCE UNSPECIFIED
     Dosage: 200 ML, QD
     Route: 065
     Dates: start: 20210504, end: 20210520
  64. DOBUTAMINE [Concomitant]
     Active Substance: DOBUTAMINE HYDROCHLORIDE
     Indication: Product used for unknown indication
     Dosage: 100 MG, BID
     Route: 041
     Dates: start: 20210504, end: 20210518
  65. DOBUTAMINE [Concomitant]
     Active Substance: DOBUTAMINE HYDROCHLORIDE
     Route: 041
     Dates: start: 20210504, end: 20210518
  66. METHYLPREDNISOLONE SODIUM SUCCINATE [Concomitant]
     Active Substance: METHYLPREDNISOLONE SODIUM SUCCINATE
     Indication: Product used for unknown indication
     Dosage: 1000 MG, QD
     Route: 042
     Dates: start: 20210517, end: 20210519
  67. SODIUM CHLORIDE [Concomitant]
     Active Substance: SODIUM CHLORIDE
     Indication: Product used for unknown indication
     Dosage: 40 ML, QD
     Route: 041
     Dates: start: 20210504, end: 20210519
  68. SODIUM CHLORIDE [Concomitant]
     Active Substance: SODIUM CHLORIDE
     Route: 065
     Dates: start: 20210603
  69. SODIUM CHLORIDE [Concomitant]
     Active Substance: SODIUM CHLORIDE
     Dosage: 20 ML, QD
     Route: 041
     Dates: start: 20210522, end: 20210616
  70. SODIUM CHLORIDE [Concomitant]
     Active Substance: SODIUM CHLORIDE
     Dosage: 3 G, QD
     Route: 065
     Dates: start: 20210603
  71. VASOPRESSIN [Concomitant]
     Active Substance: VASOPRESSIN
     Indication: Product used for unknown indication
     Dosage: 2 {DF}, QD
     Route: 065
     Dates: start: 20210511, end: 20210520
  72. GLUCOSE/SODIUM L-LACTATE/ZINC SULFATE MONOHYDRATE/SODIUM CHLORIDE/MAGN [Concomitant]
     Indication: Product used for unknown indication
     Dosage: 500 ML, QD
     Route: 065
     Dates: start: 20210504, end: 20210520
  73. INSULIN HUMAN [Concomitant]
     Active Substance: INSULIN HUMAN
     Indication: Product used for unknown indication
     Dosage: 10 [IU], QD
     Route: 042
     Dates: start: 20210504, end: 20210520
  74. INSULIN HUMAN [Concomitant]
     Active Substance: INSULIN HUMAN
     Dosage: 20 [IU], QD
     Route: 042
     Dates: start: 20210526, end: 20210527
  75. INSULIN HUMAN [Concomitant]
     Active Substance: INSULIN HUMAN
     Dosage: 20 [IU], QD
     Route: 042
     Dates: start: 20210523, end: 20210603
  76. MANGANESE/ZINC [Concomitant]
     Indication: Product used for unknown indication
     Dosage: 1 {DF}, QD
     Route: 041
     Dates: start: 20210504, end: 20210521
  77. VITAMINS NOS [Concomitant]
     Active Substance: VITAMINS
     Indication: Product used for unknown indication
     Dosage: 1 {DF}, QD
     Route: 065
     Dates: start: 20210504, end: 20210521
  78. MIDAZOLAM [Concomitant]
     Active Substance: MIDAZOLAM
     Indication: Product used for unknown indication
     Dosage: 20 ML, QD
     Route: 065
     Dates: start: 20210520, end: 20210520
  79. MIDAZOLAM [Concomitant]
     Active Substance: MIDAZOLAM
     Dosage: 20 ML, QD
     Route: 065
     Dates: start: 20210517, end: 20210521
  80. LANSOPRAZOLE [Concomitant]
     Active Substance: LANSOPRAZOLE
     Indication: Product used for unknown indication
     Dosage: 30 MG, QD
     Route: 042
     Dates: start: 20210504, end: 20210521
  81. HYDROCORTISONE SODIUM SUCCINATE [Concomitant]
     Active Substance: HYDROCORTISONE SODIUM SUCCINATE
     Indication: Product used for unknown indication
     Dosage: 100 MG, QD
     Route: 042
     Dates: start: 20210525, end: 20210526
  82. HYDROCORTISONE SODIUM SUCCINATE [Concomitant]
     Active Substance: HYDROCORTISONE SODIUM SUCCINATE
     Dosage: 250 MG, QD
     Route: 042
     Dates: start: 20210512, end: 20210608
  83. HYDROCORTISONE SODIUM SUCCINATE [Concomitant]
     Active Substance: HYDROCORTISONE SODIUM SUCCINATE
     Dosage: 125 MG, QD
     Route: 042
     Dates: start: 20210609, end: 20210622
  84. HYDROCORTISONE SODIUM SUCCINATE [Concomitant]
     Active Substance: HYDROCORTISONE SODIUM SUCCINATE
     Dosage: 60 MG, QD
     Route: 042
     Dates: start: 20210623
  85. HYDROCORTISONE SODIUM SUCCINATE [Concomitant]
     Active Substance: HYDROCORTISONE SODIUM SUCCINATE
     Dosage: 250 MG, QD
     Route: 042
     Dates: start: 20210512, end: 20210608
  86. HYDROCORTISONE SODIUM SUCCINATE [Concomitant]
     Active Substance: HYDROCORTISONE SODIUM SUCCINATE
     Dosage: 125 MG, QD
     Route: 042
     Dates: start: 20210609, end: 20210622
  87. REMIFENTANIL [Concomitant]
     Active Substance: REMIFENTANIL
     Indication: Product used for unknown indication
     Dosage: 25 MG, QD
     Route: 042
     Dates: start: 20210526, end: 20210526
  88. DEXTROSE [Concomitant]
     Active Substance: DEXTROSE
     Indication: Product used for unknown indication
     Dosage: 200 ML, QD
     Route: 065
     Dates: start: 20210523, end: 20210603
  89. DEXTROSE [Concomitant]
     Active Substance: DEXTROSE
     Dosage: 30 ML, QD
     Route: 041
     Dates: start: 20210504, end: 20210603
  90. WATER FOR INJECTION [Concomitant]
     Active Substance: WATER
     Indication: Product used for unknown indication
     Dosage: 250 ML, QD
     Route: 065
     Dates: start: 20210523, end: 20210603
  91. DEXMEDETOMIDINE HYDROCHLORIDE [Concomitant]
     Active Substance: DEXMEDETOMIDINE HYDROCHLORIDE
     Indication: Product used for unknown indication
     Dosage: 50 ML, QD
     Route: 042
     Dates: start: 20210504, end: 20210611
  92. DEXMEDETOMIDINE HYDROCHLORIDE [Concomitant]
     Active Substance: DEXMEDETOMIDINE HYDROCHLORIDE
     Dosage: 50 ML, QD
     Route: 042
     Dates: start: 20210619, end: 20210619
  93. SODIUM BICARBONATE/SODIUM CITRATE DIHYDRATE/POTASSIUM CHLORIDE/SODIUM [Concomitant]
     Indication: Product used for unknown indication
     Dosage: 500 ML, QD
     Route: 065
     Dates: start: 20210521, end: 20210616
  94. MENATETRENONE [Concomitant]
     Active Substance: MENATETRENONE
     Indication: Product used for unknown indication
     Dosage: 2 ML, QD
     Route: 042
     Dates: start: 20210504, end: 20210616
  95. CARPERITIDE [Concomitant]
     Active Substance: CARPERITIDE
     Indication: Product used for unknown indication
     Dosage: 2 {DF}, QD
     Route: 065
     Dates: start: 20210504, end: 20210603
  96. DAPTOMYCIN [Concomitant]
     Active Substance: DAPTOMYCIN
     Indication: Staphylococcal infection
     Dosage: 700 MG, QD
     Route: 041
     Dates: start: 20210423, end: 20210622
  97. DAPTOMYCIN [Concomitant]
     Active Substance: DAPTOMYCIN
  98. AMPICILLIN SODIUM\SULBACTAM SODIUM [Concomitant]
     Active Substance: AMPICILLIN SODIUM\SULBACTAM SODIUM
     Indication: Product used for unknown indication
     Dosage: 3 G, QD
     Route: 042
     Dates: start: 20210505, end: 20210602
  99. AMPICILLIN SODIUM\SULBACTAM SODIUM [Concomitant]
     Active Substance: AMPICILLIN SODIUM\SULBACTAM SODIUM
     Dosage: 3 G, QD
     Route: 042
     Dates: start: 20210603, end: 20210622
  100. NOREPINEPHRINE BITARTRATE [Concomitant]
     Active Substance: NOREPINEPHRINE BITARTRATE
     Indication: Product used for unknown indication
     Dosage: 1 ML, 5 TIMES/DAY
     Route: 041
     Dates: start: 20210504, end: 20210611
  101. CYSTEINE HYDROCHLORIDE/GLYCINE/GLYCYRRHIZIC ACID, AMMONIUM SALT [Concomitant]
     Indication: Product used for unknown indication
     Dosage: 20 ML, QD
     Route: 041
     Dates: start: 20210526, end: 20210611
  102. BROMHEXINE HYDROCHLORIDE [Concomitant]
     Active Substance: BROMHEXINE HYDROCHLORIDE
     Indication: Product used for unknown indication
     Dosage: 4 MG, BID
     Route: 065
     Dates: start: 20210504, end: 20210616
  103. BROMHEXINE HYDROCHLORIDE [Concomitant]
     Active Substance: BROMHEXINE HYDROCHLORIDE
     Route: 041
     Dates: start: 20210504, end: 20210616
  104. SENNOSIDE A [Concomitant]
     Active Substance: SENNOSIDE A
     Indication: Product used for unknown indication
     Dosage: 24 MG, PRN
     Route: 065
     Dates: start: 20210603
  105. SODIUM PICOSULFATE [Concomitant]
     Active Substance: SODIUM PICOSULFATE
     Indication: Product used for unknown indication
     Dosage: UNKNOWN, UNKNOWN, PRN
     Route: 065
  106. INSULIN GLARGINE BIOSIMILAR 1 [Concomitant]
     Indication: Product used for unknown indication
     Dosage: UNKNOWN, UNKNOWN
     Route: 065
  107. ALPROSTADIL ALFADEX [Concomitant]
     Active Substance: ALPROSTADIL ALFADEX
     Indication: Product used for unknown indication
     Dosage: UNKNOWN, UNKNOWN
     Route: 065
  108. SUVOREXANT [Concomitant]
     Active Substance: SUVOREXANT
     Indication: Product used for unknown indication
     Dosage: 15 MG, QD
     Route: 065
     Dates: start: 20210606
  109. RAMELTEON [Concomitant]
     Active Substance: RAMELTEON
     Indication: Product used for unknown indication
     Dosage: 8 MG, QD
     Route: 065
     Dates: start: 20210606
  110. AMBROXOL HYDROCHLORIDE [Concomitant]
     Active Substance: AMBROXOL HYDROCHLORIDE
     Indication: Product used for unknown indication
     Dosage: 45 MG, QD
     Route: 065
     Dates: start: 20210602
  111. LACTULOSE [Concomitant]
     Active Substance: LACTULOSE
     Indication: Product used for unknown indication
     Dosage: 30 ML, QD
     Route: 065
     Dates: start: 20210603
  112. CARBOCYSTEINE [Concomitant]
     Active Substance: CARBOCYSTEINE
     Indication: Product used for unknown indication
     Dosage: 3 G, QD
     Route: 065
     Dates: start: 20210617
  113. CLINDAMYCIN HYDROCHLORIDE [Concomitant]
     Active Substance: CLINDAMYCIN HYDROCHLORIDE
     Indication: Product used for unknown indication
     Dosage: 300 MG, TID
     Route: 065
     Dates: start: 20210623
  114. ACETAMINOPHEN [Concomitant]
     Active Substance: ACETAMINOPHEN
     Indication: Product used for unknown indication
     Dosage: 500 MG, PRN
     Route: 041
     Dates: start: 20210619, end: 20210619

REACTIONS (1)
  - Pancytopenia [Recovered/Resolved]

NARRATIVE: CASE EVENT DATE: 20210604
